FAERS Safety Report 12010604 (Version 1)
Quarter: 2016Q1

REPORT INFORMATION
  Report Type: Spontaneous
  Country: CA (occurrence: CA)
  Receive Date: 20160205
  Receipt Date: 20160205
  Transmission Date: 20160526
  Serious: Yes (Other)
  Sender: FDA-Public Use
  Company Number: CA-MALLINCKRODT-T201600258

PATIENT

DRUGS (3)
  1. INOMAX [Suspect]
     Active Substance: NITRIC OXIDE
     Indication: CARBON DIOXIDE INCREASED
     Dosage: 40 PPM, CONTINUOUS
  2. SURFACTANT BL [Concomitant]
     Indication: NEONATAL RESPIRATORY DISTRESS SYNDROME
  3. INOMAX [Suspect]
     Active Substance: NITRIC OXIDE
     Indication: OXYGEN SATURATION DECREASED
     Dosage: 20 PPM, CONTINUOUS

REACTIONS (2)
  - Device issue [Unknown]
  - Oxygen saturation decreased [Recovered/Resolved]
